FAERS Safety Report 14819655 (Version 1)
Quarter: 2018Q2

REPORT INFORMATION
  Report Type: Report from Study
  Country: US (occurrence: US)
  Receive Date: 20180427
  Receipt Date: 20180427
  Transmission Date: 20180711
  Serious: Yes (Other)
  Sender: FDA-Public Use
  Company Number: US-BAYER-2018-078327

PATIENT
  Age: 16 Year
  Sex: Female

DRUGS (3)
  1. ASPIRIN. [Suspect]
     Active Substance: ASPIRIN
     Dosage: UNK
  2. PROSTACYCLIN [Concomitant]
     Active Substance: EPOPROSTENOL
     Route: 042
  3. WARFARIN [Interacting]
     Active Substance: WARFARIN
     Dosage: UNK

REACTIONS (3)
  - Drug administration error [None]
  - Haemoptysis [Not Recovered/Not Resolved]
  - Labelled drug-drug interaction medication error [None]
